FAERS Safety Report 21673696 (Version 1)
Quarter: 2022Q4

REPORT INFORMATION
  Report Type: Other
  Country: US (occurrence: US)
  Receive Date: 20221202
  Receipt Date: 20221202
  Transmission Date: 20230113
  Serious: No
  Sender: FDA-Public Use
  Company Number: US-GBT-017978

PATIENT
  Age: 32 Year
  Sex: Male

DRUGS (1)
  1. OXBRYTA [Suspect]
     Active Substance: VOXELOTOR
     Indication: Sickle cell disease
     Dosage: 300 MG TABLETS FOR ORAL SUSPENSION
     Dates: start: 2021

REACTIONS (5)
  - Fatigue [Unknown]
  - Headache [Unknown]
  - Therapy interrupted [Unknown]
  - Pyrexia [Unknown]
  - Off label use [Unknown]
